FAERS Safety Report 16123618 (Version 1)
Quarter: 2019Q1

REPORT INFORMATION
  Report Type: Spontaneous
  Country: US (occurrence: US)
  Receive Date: 20190327
  Receipt Date: 20190327
  Transmission Date: 20190418
  Serious: Yes (Other)
  Sender: FDA-Public Use
  Company Number: US-PFIZER INC-2019128273

PATIENT
  Age: 59 Year
  Sex: Female
  Weight: 87 kg

DRUGS (2)
  1. SODIUM BICARBONATE. [Suspect]
     Active Substance: SODIUM BICARBONATE
     Indication: ANAESTHESIA
     Dosage: 5 ML OF 8.4% INTO A 50 ML PRE-FILLED VIAL
  2. EPINEPHRINE/LIDOCAINE [Suspect]
     Active Substance: EPINEPHRINE\LIDOCAINE
     Indication: ANAESTHESIA
     Dosage: UNK

REACTIONS (3)
  - Mouth swelling [None]
  - Angioedema [None]
  - Angioedema [Recovered/Resolved]
